FAERS Safety Report 9768845 (Version 1)
Quarter: 2013Q4

REPORT INFORMATION
  Report Type: Spontaneous
  Country: IT (occurrence: IT)
  Receive Date: 20131218
  Receipt Date: 20131218
  Transmission Date: 20140711
  Serious: Yes (Other)
  Sender: FDA-Public Use
  Company Number: IT-ROCHE-1319899

PATIENT
  Age: 35 Year
  Sex: Male
  Weight: 50 kg

DRUGS (3)
  1. AVASTIN [Suspect]
     Indication: RECTOSIGMOID CANCER
     Route: 042
     Dates: start: 20131015, end: 20131112
  2. IRINOTECAN HYDROCHLORIDE [Suspect]
     Indication: RECTOSIGMOID CANCER
     Route: 042
     Dates: start: 20131015
  3. FLUOROURACIL [Suspect]
     Indication: RECTOSIGMOID CANCER
     Route: 065
     Dates: start: 20131015

REACTIONS (2)
  - Proteinuria [Unknown]
  - Hypertransaminasaemia [Unknown]
